FAERS Safety Report 4710585-3 (Version None)
Quarter: 2005Q3

REPORT INFORMATION
  Report Type: 
  Country: None (occurrence: None)
  Receive Date: 20050707
  Receipt Date: 20050616
  Transmission Date: 20060218
  Serious: Yes (Death, Hospitalization, Other)
  Sender: FDA-Public Use
  Company Number: EWC050644285

PATIENT
  Age: 17 Year
  Sex: Female
  Weight: 33 kg

DRUGS (3)
  1. ZYPREXA [Suspect]
     Indication: ANOREXIA NERVOSA
     Dosage: 5 MG DAY
     Dates: start: 20050305, end: 20050306
  2. ZYPREXA [Suspect]
     Indication: PSEUDONEUROLOGIC SYMPTOM
     Dosage: 5 MG DAY
     Dates: start: 20050305, end: 20050306
  3. ZYPREXA [Suspect]
     Indication: SCHIZOPHRENIA
     Dosage: 5 MG DAY
     Dates: start: 20050305, end: 20050306

REACTIONS (21)
  - ACUTE ABDOMEN [None]
  - CARBUNCLE [None]
  - CARDIAC DISORDER [None]
  - DISSEMINATED INTRAVASCULAR COAGULATION [None]
  - ENDOTOXIC SHOCK [None]
  - GASTRIC ULCER PERFORATION [None]
  - GASTROINTESTINAL HAEMORRHAGE [None]
  - GASTROINTESTINAL NECROSIS [None]
  - HAEMORRHAGE [None]
  - HEPATIC NECROSIS [None]
  - HYPERPLASIA [None]
  - MUCOUS MEMBRANE DISORDER [None]
  - PANCREATITIS [None]
  - PERITONITIS [None]
  - RENAL DISORDER [None]
  - RENAL NECROSIS [None]
  - SEPSIS [None]
  - SEPTIC SHOCK [None]
  - SHOCK [None]
  - SPLEEN DISORDER [None]
  - TREATMENT NONCOMPLIANCE [None]
